FAERS Safety Report 9292224 (Version 1)
Quarter: 2013Q2

REPORT INFORMATION
  Report Type: Spontaneous
  Country: US (occurrence: US)
  Receive Date: 20130516
  Receipt Date: 20130516
  Transmission Date: 20140414
  Serious: No
  Sender: FDA-Public Use
  Company Number: US-MYLANLABS-2012S1023794

PATIENT
  Sex: Female

DRUGS (2)
  1. CLOMIPRAMINE HCL CAPSULES [Suspect]
     Indication: OBSESSIVE-COMPULSIVE DISORDER
     Route: 048
     Dates: start: 2000
  2. VALIUM [Concomitant]
     Indication: ANXIETY
     Route: 048

REACTIONS (1)
  - Abdominal distension [Not Recovered/Not Resolved]
